FAERS Safety Report 7189980-1 (Version None)
Quarter: 2010Q4

REPORT INFORMATION
  Report Type: 
  Country: None (occurrence: None)
  Receive Date: 20101210
  Receipt Date: 20101129
  Transmission Date: 20110411
  Serious: Yes (Other)
  Sender: FDA-Public Use
  Company Number: TRP_07422_2010

PATIENT
  Sex: Female
  Weight: 158.759 kg

DRUGS (12)
  1. INFERGEN [Suspect]
     Indication: HEPATITIS C
     Dosage: (15 UG QD SUBCUTANEOUS)
     Route: 058
     Dates: start: 20100916, end: 20101111
  2. INFERGEN [Suspect]
     Indication: HEPATITIS C
     Dosage: (15 UG QD SUBCUTANEOUS)
     Route: 058
     Dates: start: 20101111
  3. RIBAVIRIN [Suspect]
     Indication: HEPATITIS C
     Dosage: (600 MG BID ORAL)
     Route: 048
     Dates: start: 20100916
  4. CYMBALTA [Concomitant]
  5. ABILIFY [Concomitant]
  6. TOPAMAX [Concomitant]
  7. TRAZODONE [Concomitant]
  8. XANAX [Concomitant]
  9. HYDROCODONE [Concomitant]
  10. NEURONTIN [Concomitant]
  11. SINGULAIR [Concomitant]
  12. OMEPRAZOLE [Concomitant]

REACTIONS (6)
  - ASTHENIA [None]
  - BODY TEMPERATURE INCREASED [None]
  - FATIGUE [None]
  - PAIN [None]
  - SLUGGISHNESS [None]
  - WHITE BLOOD CELL COUNT DECREASED [None]
